FAERS Safety Report 5579447-6 (Version None)
Quarter: 2007Q4

REPORT INFORMATION
  Report Type: 
  Country: None (occurrence: None)
  Receive Date: 20071130
  Receipt Date: 20070709
  Transmission Date: 20080405
  Serious: No
  Sender: FDA-Public Use
  Company Number: US200707002041

PATIENT
  Age: 65 Year
  Sex: Male

DRUGS (6)
  1. BYETTA [Suspect]
     Indication: TYPE 2 DIABETES MELLITUS
     Dosage: 5 UG, 2/D, SUBCUTANEOUS
     Route: 058
     Dates: start: 20070705
  2. METFORMIN HCL [Concomitant]
  3. GLIMEPIRIDE [Concomitant]
  4. METOPROLOL TARTRATE [Concomitant]
  5. LOTREL [Concomitant]
  6. ACCUPRIL [Concomitant]

REACTIONS (3)
  - HEART RATE INCREASED [None]
  - INJECTION SITE HAEMORRHAGE [None]
  - STOMACH DISCOMFORT [None]
